FAERS Safety Report 7521474-3 (Version None)
Quarter: 2011Q2

REPORT INFORMATION
  Report Type: 
  Country: None (occurrence: None)
  Receive Date: 20110603
  Receipt Date: 20110120
  Transmission Date: 20111010
  Serious: Yes (Hospitalization)
  Sender: FDA-Public Use
  Company Number: US-BAYER-201027079NA

PATIENT
  Age: 33 Year
  Sex: Female
  Weight: 84.807 kg

DRUGS (4)
  1. YAZ [Suspect]
     Indication: CONTRACEPTION
     Dosage: UNK UNK, QD
     Route: 048
     Dates: start: 20070101, end: 20091125
  2. MIRENA [Concomitant]
     Dosage: UNK
     Dates: start: 20090701
  3. THYROID TAB [Concomitant]
     Indication: THYROID FUNCTION TEST ABNORMAL
  4. ZOSYN [Concomitant]
     Route: 042

REACTIONS (5)
  - ABDOMINAL PAIN UPPER [None]
  - POST PROCEDURAL INFECTION [None]
  - CHOLECYSTITIS CHRONIC [None]
  - CHOLECYSTITIS [None]
  - GALLBLADDER CHOLESTEROLOSIS [None]
